FAERS Safety Report 10401386 (Version 2)
Quarter: 2014Q4

REPORT INFORMATION
  Report Type: Spontaneous
  Country: US (occurrence: US)
  Receive Date: 20140822
  Receipt Date: 20141029
  Transmission Date: 20150528
  Serious: Yes (Hospitalization, Other)
  Sender: FDA-Public Use
  Company Number: US-UCBSA-2014008963

PATIENT
  Age: 52 Year
  Sex: Female
  Weight: 104.7 kg

DRUGS (2)
  1. VIMPAT [Suspect]
     Active Substance: LACOSAMIDE
     Indication: PETIT MAL EPILEPSY
     Dosage: 200MG/1 DAY
     Route: 048
     Dates: start: 2011
  2. TEGRETOL [Concomitant]
     Active Substance: CARBAMAZEPINE
     Indication: PETIT MAL EPILEPSY
     Dosage: 400 MG, 2X/DAY (BID)
     Route: 048
     Dates: start: 2011

REACTIONS (3)
  - Post procedural infection [Recovered/Resolved]
  - Seizure [Recovering/Resolving]
  - Breast cancer [Recovered/Resolved]

NARRATIVE: CASE EVENT DATE: 20140415
